FAERS Safety Report 23638623 (Version 1)
Quarter: 2024Q1

REPORT INFORMATION
  Report Type: Spontaneous
  Country: IT (occurrence: IT)
  Receive Date: 20240315
  Receipt Date: 20240315
  Transmission Date: 20240409
  Serious: Yes (Other)
  Sender: FDA-Public Use
  Company Number: IT-SUN PHARMACEUTICAL INDUSTRIES LTD-2024RR-436910

PATIENT
  Age: 67 Year
  Sex: Male

DRUGS (2)
  1. OXALIPLATIN [Suspect]
     Active Substance: OXALIPLATIN
     Indication: Colon neoplasm
     Dosage: 239 MILLIGRAM
     Route: 040
     Dates: start: 20231108
  2. CAPECITABINE [Suspect]
     Active Substance: CAPECITABINE
     Indication: Colon neoplasm
     Dosage: 3600 MILLIGRAM, DAILY
     Route: 048
     Dates: start: 20231108, end: 20231114

REACTIONS (5)
  - Mucosal inflammation [Recovered/Resolved]
  - Intestinal ischaemia [Recovering/Resolving]
  - Thrombocytopenia [Recovering/Resolving]
  - Peripheral ischaemia [Recovering/Resolving]
  - Neutropenia [Recovering/Resolving]

NARRATIVE: CASE EVENT DATE: 20231114
